FAERS Safety Report 7396861-7 (Version None)
Quarter: 2011Q2

REPORT INFORMATION
  Report Type: 
  Country: None (occurrence: None)
  Receive Date: 20110406
  Receipt Date: 20110327
  Transmission Date: 20111010
  Serious: Yes (Death)
  Sender: FDA-Public Use
  Company Number: DE-BAXTER-2011BH009177

PATIENT

DRUGS (9)
  1. PROCARBAZINE [Suspect]
     Indication: HODGKIN'S DISEASE
     Route: 065
  2. DOXORUBICIN [Suspect]
     Indication: HODGKIN'S DISEASE
     Route: 065
  3. VINBLASTINE [Suspect]
     Indication: HODGKIN'S DISEASE
     Route: 065
  4. ETOPOSIDE [Suspect]
     Indication: HODGKIN'S DISEASE
     Route: 065
  5. VINCRISTINE [Suspect]
     Indication: HODGKIN'S DISEASE
     Route: 065
  6. BLEOMYCIN [Suspect]
     Indication: HODGKIN'S DISEASE
     Route: 065
  7. PREDNISONE [Suspect]
     Indication: HODGKIN'S DISEASE
     Route: 065
  8. DACARBAZINE [Suspect]
     Indication: HODGKIN'S DISEASE
     Route: 065
  9. CYCLOPHOSPHAMIDE [Suspect]
     Indication: HODGKIN'S DISEASE
     Route: 065

REACTIONS (1)
  - TOXICITY TO VARIOUS AGENTS [None]
